FAERS Safety Report 9387849 (Version 1)
Quarter: 2013Q3

REPORT INFORMATION
  Report Type: Spontaneous
  Country: US (occurrence: US)
  Receive Date: 20130708
  Receipt Date: 20130708
  Transmission Date: 20140515
  Serious: Yes (Hospitalization, Other)
  Sender: FDA-Public Use
  Company Number: US-BAXTER-2013BAX022824

PATIENT
  Sex: Male

DRUGS (2)
  1. DIANEAL LOW CALCIUM [Suspect]
     Indication: PERITONEAL DIALYSIS
     Route: 033
     Dates: start: 20121001
  2. DIANEAL LOW CALCIUM [Suspect]
     Route: 033
     Dates: start: 20121001

REACTIONS (2)
  - Large intestine perforation [Unknown]
  - Peritonitis [Recovering/Resolving]
